FAERS Safety Report 18001514 (Version 2)
Quarter: 2020Q3

REPORT INFORMATION
  Report Type: Report from Study
  Country: CA (occurrence: CA)
  Receive Date: 20200709
  Receipt Date: 20200818
  Transmission Date: 20201103
  Serious: Yes (Hospitalization, Other)
  Sender: FDA-Public Use
  Company Number: CA-JNJFOC-20191007182

PATIENT
  Age: 24 Year
  Sex: Female
  Weight: 87.5 kg

DRUGS (3)
  1. MICRONOR [Concomitant]
     Active Substance: NORETHINDRONE
     Indication: CONTRACEPTION
     Dosage: MICRONORT
     Route: 065
  2. REMICADE [Suspect]
     Active Substance: INFLIXIMAB
     Indication: CROHN^S DISEASE
     Route: 042
     Dates: start: 201611, end: 20200222
  3. REMICADE [Suspect]
     Active Substance: INFLIXIMAB
     Dosage: V7: LAST INFUSION WAS ON 27?JUN?2020 AND ON 06?AUG?2020
     Route: 042
     Dates: start: 201611, end: 20200222

REACTIONS (13)
  - Headache [Unknown]
  - Aphonia [Recovered/Resolved]
  - Influenza [Unknown]
  - Infusion related reaction [Unknown]
  - Acne [Unknown]
  - Crohn^s disease [Unknown]
  - Suture rupture [Unknown]
  - Fatigue [Unknown]
  - Ear infection [Unknown]
  - Inappropriate schedule of product administration [Unknown]
  - Exposure during pregnancy [Recovered/Resolved]
  - Episiotomy [Recovering/Resolving]
  - Haemorrhoids [Not Recovered/Not Resolved]

NARRATIVE: CASE EVENT DATE: 2019
